FAERS Safety Report 13546762 (Version 2)
Quarter: 2020Q3

REPORT INFORMATION
  Report Type: Report from Study
  Country: UA (occurrence: UA)
  Receive Date: 20170515
  Receipt Date: 20170525
  Transmission Date: 20201104
  Serious: Yes (Death, Life-Threatening, Hospitalization, Other)
  Sender: FDA-Public Use
  Company Number: UA-ASTRAZENECA-2016SE32770

PATIENT
  Age: 16719 Day
  Sex: Male

DRUGS (11)
  1. DIABETON [Concomitant]
     Active Substance: GLICLAZIDE
     Indication: DIABETES MELLITUS
     Route: 048
     Dates: start: 20160224
  2. MANIT [Concomitant]
     Indication: PREMEDICATION
     Dosage: 200.0ML ONCE/SINGLE ADMINISTRATION
     Route: 042
     Dates: start: 20160316, end: 20160316
  3. MEDI4736 [Suspect]
     Active Substance: DURVALUMAB
     Indication: NON-SMALL CELL LUNG CANCER
     Route: 042
     Dates: start: 20160316
  4. DEXASON [Concomitant]
     Active Substance: DEXAMETHASONE
     Indication: PREMEDICATION
     Dosage: 16.0MG ONCE/SINGLE ADMINISTRATION
     Route: 042
     Dates: start: 20160316, end: 20160316
  5. ARGININE GLUTAMATE [Concomitant]
     Active Substance: ARGININE GLUTAMATE
     Indication: LABORATORY TEST ABNORMAL
     Dosage: 750 MG THREE TIMES A DAY
     Route: 048
     Dates: start: 20160316
  6. TREMELIMUMAB. [Suspect]
     Active Substance: TREMELIMUMAB
     Indication: NON-SMALL CELL LUNG CANCER
     Route: 042
     Dates: start: 20160217, end: 20160217
  7. ARGININE GLUTAMATE [Concomitant]
     Active Substance: ARGININE GLUTAMATE
     Indication: LABORATORY TEST ABNORMAL
     Route: 042
     Dates: start: 20160321
  8. RINGERS SOLUTION [Concomitant]
     Active Substance: CALCIUM CHLORIDE\POTASSIUM CHLORIDE\SODIUM CHLORIDE
     Indication: PREMEDICATION
     Dosage: 400.0ML ONCE/SINGLE ADMINISTRATION
     Route: 042
     Dates: start: 20160316, end: 20160316
  9. MEDI4736 [Suspect]
     Active Substance: DURVALUMAB
     Indication: NON-SMALL CELL LUNG CANCER
     Route: 042
     Dates: start: 20160217, end: 20160217
  10. TREMELIMUMAB. [Suspect]
     Active Substance: TREMELIMUMAB
     Indication: NON-SMALL CELL LUNG CANCER
     Route: 042
     Dates: start: 20160316
  11. ONDANSETRON [Concomitant]
     Active Substance: ONDANSETRON
     Indication: PREMEDICATION
     Dosage: 20.0MG ONCE/SINGLE ADMINISTRATION
     Route: 042
     Dates: start: 20160316, end: 20160316

REACTIONS (3)
  - Alanine aminotransferase increased [Fatal]
  - Multiple organ dysfunction syndrome [Fatal]
  - Aspartate aminotransferase increased [Fatal]

NARRATIVE: CASE EVENT DATE: 20160316
